FAERS Safety Report 8800868 (Version 1)
Quarter: 2012Q4

REPORT INFORMATION
  Report Type: Report from Study
  Country: CA (occurrence: CA)
  Receive Date: 20120920
  Receipt Date: 20120920
  Transmission Date: 20130627
  Serious: Yes (Hospitalization)
  Sender: FDA-Public Use
  Company Number: CA-ROCHE-1132625

PATIENT
  Sex: Female
  Weight: 47.67 kg

DRUGS (7)
  1. AVASTIN [Suspect]
     Indication: OVARIAN CANCER
     Route: 042
     Dates: start: 20120831
  2. LOVENOX [Concomitant]
  3. PRISTIQ [Concomitant]
  4. CLONAZEPAM [Concomitant]
  5. ZOPICLONE [Concomitant]
  6. OXYCODONE [Concomitant]
  7. LEVOTHYROXINE [Concomitant]

REACTIONS (3)
  - Blood calcium increased [Unknown]
  - Nausea [Unknown]
  - Vomiting [Unknown]
